FAERS Safety Report 17649113 (Version 2)
Quarter: 2020Q2

REPORT INFORMATION
  Report Type: Spontaneous
  Country: US (occurrence: US)
  Receive Date: 20200408
  Receipt Date: 20200415
  Transmission Date: 20200713
  Serious: Yes (Hospitalization, Other)
  Sender: FDA-Public Use
  Company Number: US-PFIZER INC-2020144445

PATIENT
  Age: 36 Year
  Sex: Female

DRUGS (7)
  1. ESTROGEN NOS/PROGESTERONE [Concomitant]
     Indication: CONTRACEPTION
     Dosage: UNK(PATCH)
     Route: 061
  2. NITROGLYCERIN. [Suspect]
     Active Substance: NITROGLYCERIN
     Indication: CORONARY ARTERY DISSECTION
     Dosage: UNK
     Route: 041
  3. HEPARIN SODIUM. [Suspect]
     Active Substance: HEPARIN SODIUM
     Indication: ACUTE CORONARY SYNDROME
     Dosage: UNK
     Route: 041
  4. NITROGLYCERIN. [Suspect]
     Active Substance: NITROGLYCERIN
     Indication: ACUTE CORONARY SYNDROME
  5. PROGESTERONE. [Suspect]
     Active Substance: PROGESTERONE
     Indication: CONTRACEPTION
     Dosage: UNK, (LOW-DOSE PROGESTERONE INTRAUTERINE DEVICE)
     Route: 050
  6. PROGESTERONE. [Suspect]
     Active Substance: PROGESTERONE
     Dosage: UNK
  7. HEPARIN SODIUM. [Suspect]
     Active Substance: HEPARIN SODIUM
     Indication: CORONARY ARTERY DISSECTION

REACTIONS (5)
  - Ventricular hypokinesia [Recovering/Resolving]
  - Arterial intramural haematoma [Recovering/Resolving]
  - Drug ineffective [Unknown]
  - Disease progression [Recovering/Resolving]
  - Coronary artery dissection [Recovering/Resolving]
